FAERS Safety Report 4933581-X (Version None)
Quarter: 2006Q1

REPORT INFORMATION
  Report Type: 
  Country: None (occurrence: None)
  Receive Date: 20060117
  Receipt Date: 20051110
  Transmission Date: 20060701
  Serious: Yes (Other)
  Sender: FDA-Public Use
  Company Number: 2005124752

PATIENT
  Age: 85 Year
  Sex: Female
  Weight: 53.5244 kg

DRUGS (9)
  1. MACUGEN [Suspect]
     Indication: MACULAR DEGENERATION
     Dosage: (1 IN 6 WK), INTRAVITREOUS
     Dates: start: 20050627
  2. ADVAIR DISKUS 100/50 [Concomitant]
  3. CALCIUM (CALCIUM) [Concomitant]
  4. LISINOPRIL [Concomitant]
  5. NORTRIPTYLINE (NORTRIPTYLINE) [Concomitant]
  6. LUTEIN (XANTHOPHYLL) [Concomitant]
  7. LIPITOR [Concomitant]
  8. BILBERRY (MYRTILLUS) [Concomitant]
  9. MULTIVIT (VITAMINS NOS) [Concomitant]

REACTIONS (1)
  - INJECTION SITE PAIN [None]
